FAERS Safety Report 5080798-2 (Version None)
Quarter: 2006Q3

REPORT INFORMATION
  Report Type: 
  Country: None (occurrence: None)
  Receive Date: 20060810
  Receipt Date: 20060729
  Transmission Date: 20061208
  Serious: Yes (Other)
  Sender: FDA-Public Use
  Company Number: 14483

PATIENT
  Age: 62 Year
  Sex: Male

DRUGS (1)
  1. BLEOMYCIN [Suspect]
     Indication: TESTIS CANCER

REACTIONS (4)
  - DERMATITIS [None]
  - ERYTHEMA [None]
  - SKIN LESION [None]
  - URTICARIA [None]
